FAERS Safety Report 10060876 (Version 1)
Quarter: 2014Q2

REPORT INFORMATION
  Report Type: Spontaneous
  Country: BR (occurrence: BR)
  Receive Date: 20140404
  Receipt Date: 20140404
  Transmission Date: 20141212
  Serious: Yes (Hospitalization, Disabling)
  Sender: FDA-Public Use
  Company Number: BR-009507513-1403BRA012335

PATIENT
  Age: 27 Year
  Sex: Female
  Weight: 58 kg

DRUGS (1)
  1. MERCILON  CONTI [Suspect]
     Indication: CONTRACEPTION
     Dosage: 1 DF, QD
     Route: 048
     Dates: start: 200703

REACTIONS (5)
  - Limb operation [Recovering/Resolving]
  - Wrist fracture [Recovering/Resolving]
  - Procedural pain [Recovered/Resolved]
  - Gynaecological examination abnormal [Not Recovered/Not Resolved]
  - Drug administration error [Unknown]
